FAERS Safety Report 9230434 (Version 1)
Quarter: 2013Q2

REPORT INFORMATION
  Report Type: Spontaneous
  Country: FR (occurrence: FR)
  Receive Date: 20130415
  Receipt Date: 20130415
  Transmission Date: 20140414
  Serious: Yes (Life-Threatening)
  Sender: FDA-Public Use
  Company Number: FR-PFIZER INC-2013114138

PATIENT
  Age: 53 Year
  Sex: Female

DRUGS (3)
  1. XANAX [Suspect]
     Dosage: 0.25 MG, DAILY
     Route: 048
     Dates: start: 20121210, end: 20121213
  2. XANAX [Suspect]
     Dosage: 0.75 MG, DAILY
     Route: 048
     Dates: start: 20121213, end: 20121227
  3. XANAX [Suspect]
     Dosage: 1.5 MG, DAILY
     Route: 048
     Dates: start: 20121227, end: 20130105

REACTIONS (1)
  - Respiratory disorder [Recovered/Resolved]
